FAERS Safety Report 10162487 (Version 1)
Quarter: 2014Q2

REPORT INFORMATION
  Report Type: Report from Study
  Country: US (occurrence: US)
  Receive Date: 20140509
  Receipt Date: 20140509
  Transmission Date: 20141212
  Serious: Yes (Death, Hospitalization)
  Sender: FDA-Public Use
  Company Number: US-ABBVIE-14P-163-1235195-00

PATIENT
  Age: 73 Year
  Sex: Female
  Weight: 77.18 kg

DRUGS (4)
  1. HUMIRA [Suspect]
     Indication: DIARRHOEA
     Dates: start: 201311
  2. STEROIDS [Concomitant]
     Indication: PRODUCT USED FOR UNKNOWN INDICATION
  3. LIALDA [Concomitant]
     Indication: PRODUCT USED FOR UNKNOWN INDICATION
  4. UNKNOWN MEDICATIONS [Concomitant]
     Indication: PRODUCT USED FOR UNKNOWN INDICATION

REACTIONS (11)
  - Cardiac failure [Fatal]
  - Diarrhoea [Fatal]
  - Tremor [Fatal]
  - Peripheral coldness [Fatal]
  - White blood cell count abnormal [Fatal]
  - Blood potassium decreased [Fatal]
  - Coma [Fatal]
  - Staphylococcal infection [Unknown]
  - White blood cell count abnormal [Unknown]
  - Candida infection [Unknown]
  - Mental disorder [Unknown]
